FAERS Safety Report 5481988-7 (Version None)
Quarter: 2007Q4

REPORT INFORMATION
  Report Type: 
  Country: None (occurrence: None)
  Receive Date: 20071005
  Receipt Date: 20070924
  Transmission Date: 20080405
  Serious: Yes (Hospitalization)
  Sender: FDA-Public Use
  Company Number: 235633K07USA

PATIENT
  Age: 57 Year
  Sex: Female
  Weight: 60.782 kg

DRUGS (7)
  1. REBIF [Suspect]
     Indication: MULTIPLE SCLEROSIS
     Dosage: 22 MCG, 3 IN 1 WEEKS, SUBCUTANEOUS; 22 MC, 3 IN 1 WEEKS, SUBCUTANEOUS; 22 MCG, 3 IN 1 WEEKS, SUBCUTA
     Route: 058
     Dates: start: 20070424, end: 20070615
  2. REBIF [Suspect]
     Indication: MULTIPLE SCLEROSIS
     Dosage: 22 MCG, 3 IN 1 WEEKS, SUBCUTANEOUS; 22 MC, 3 IN 1 WEEKS, SUBCUTANEOUS; 22 MCG, 3 IN 1 WEEKS, SUBCUTA
     Route: 058
     Dates: start: 20070620, end: 20070801
  3. TYLENOL (COTYLENOL) [Concomitant]
  4. DIOVAN [Concomitant]
  5. ZYRTEC [Concomitant]
  6. RANITIDINE (RANITIDINE /00550801/) [Concomitant]
  7. BACLOFEN [Concomitant]

REACTIONS (9)
  - ABASIA [None]
  - ANAESTHETIC COMPLICATION [None]
  - BLOOD PRESSURE INCREASED [None]
  - CHEST PAIN [None]
  - CHOLELITHIASIS [None]
  - HAEMOPTYSIS [None]
  - MULTIPLE SCLEROSIS [None]
  - PAIN IN EXTREMITY [None]
  - TREMOR [None]
